FAERS Safety Report 4300757-4 (Version None)
Quarter: 2004Q1

REPORT INFORMATION
  Report Type: 
  Country: None (occurrence: None)
  Receive Date: 20040217
  Receipt Date: 20040209
  Transmission Date: 20041129
  Serious: Yes (Hospitalization)
  Sender: FDA-Public Use
  Company Number: 2002CG01722

PATIENT
  Age: 45 Year
  Sex: Female

DRUGS (10)
  1. MOPRAL [Suspect]
     Dosage: 20 MG QD PO
     Route: 048
     Dates: start: 19960101
  2. VIOXX [Suspect]
     Dosage: 25 MG DAILY PO
     Route: 048
     Dates: start: 20020401
  3. SINTROM [Suspect]
     Dates: start: 19950101
  4. REBIF [Suspect]
     Dates: start: 20010423, end: 20020913
  5. HYDROCORTISONE [Suspect]
     Dosage: 25 MG DAILY PO
     Route: 048
     Dates: start: 20010801
  6. LIPANTHYL ^BRISTOL-MYERS SQUIBB^ [Suspect]
     Dosage: 200 MG DAILY PO
     Route: 048
     Dates: start: 19950101
  7. DIDRONEL [Suspect]
     Dates: start: 19950101
  8. OROCAL [Suspect]
     Dates: start: 19950101
  9. LYSANXIA [Suspect]
     Dates: start: 19950101
  10. CONTRAMAL [Suspect]
     Dates: start: 19990101

REACTIONS (2)
  - DRUG INEFFECTIVE [None]
  - HYPERTHYROIDISM [None]
